FAERS Safety Report 8146516-6 (Version None)
Quarter: 2012Q1

REPORT INFORMATION
  Report Type: 
  Country: None (occurrence: None)
  Receive Date: 20120217
  Receipt Date: 20110720
  Transmission Date: 20120608
  Serious: No
  Sender: FDA-Public Use
  Company Number: US-ABBOTT-11P-163-0840688-00

PATIENT
  Sex: Female
  Weight: 67.646 kg

DRUGS (5)
  1. BETAMOL EYE DROPS [Concomitant]
     Indication: GLAUCOMA
  2. CALCIUM [Concomitant]
     Indication: MINERAL SUPPLEMENTATION
  3. ZINC SULFATE [Concomitant]
     Indication: MINERAL SUPPLEMENTATION
  4. DIOVAN [Concomitant]
     Indication: HYPERTENSION
  5. SIMCOR [Suspect]
     Indication: BLOOD CHOLESTEROL INCREASED
     Dosage: PATIENT NOT SURE,  500/?MG
     Dates: start: 20110601, end: 20110719

REACTIONS (3)
  - PARAESTHESIA [None]
  - HEART RATE INCREASED [None]
  - FEELING HOT [None]
